FAERS Safety Report 11767724 (Version 2)
Quarter: 2015Q4

REPORT INFORMATION
  Report Type: Spontaneous
  Country: US (occurrence: US)
  Receive Date: 20151123
  Receipt Date: 20151130
  Transmission Date: 20160304
  Serious: Yes (Hospitalization)
  Sender: FDA-Public Use
  Company Number: US-CELGENEUS-USA-2015101943

PATIENT
  Sex: Female
  Weight: 59.02 kg

DRUGS (1)
  1. REVLIMID [Suspect]
     Active Substance: LENALIDOMIDE
     Indication: PLASMA CELL MYELOMA
     Dosage: 15 MILLIGRAM
     Route: 048
     Dates: start: 201508

REACTIONS (3)
  - Spinal fracture [Unknown]
  - Alopecia [Unknown]
  - Rash pruritic [Unknown]

NARRATIVE: CASE EVENT DATE: 2015
